FAERS Safety Report 9211027 (Version 1)
Quarter: 2013Q2

REPORT INFORMATION
  Report Type: Spontaneous
  Country: FR (occurrence: FR)
  Receive Date: 20130404
  Receipt Date: 20130404
  Transmission Date: 20140414
  Serious: Yes (Hospitalization)
  Sender: FDA-Public Use
  Company Number: FR-B.I. PHARMACEUTICALS,INC./RIDGEFIELD-2012-FF-00772FF

PATIENT
  Age: 80 Year
  Sex: Female

DRUGS (5)
  1. PRADAXA [Suspect]
     Indication: ATRIAL FIBRILLATION
     Route: 048
     Dates: start: 201206
  2. HEPARINE CHOAY [Suspect]
     Dates: end: 201206
  3. LASILIX [Concomitant]
  4. DIGOXINE [Concomitant]
  5. KALEORID [Concomitant]

REACTIONS (1)
  - Thrombocytopenia [Recovered/Resolved]
